FAERS Safety Report 11068678 (Version 1)
Quarter: 2015Q2

REPORT INFORMATION
  Report Type: Spontaneous
  Country: US (occurrence: None)
  Receive Date: 20150424
  Receipt Date: 20150424
  Transmission Date: 20150821
  Serious: No
  Sender: FDA-Public Use
  Company Number: None

PATIENT
  Age: 19 Year
  Sex: Female
  Weight: 113.4 kg

DRUGS (2)
  1. PREDNISONE. [Suspect]
     Active Substance: PREDNISONE
     Dosage: ONCE A DAY FOR 5 DAYS
     Route: 048
     Dates: start: 20150422, end: 20150423
  2. AMOXICILLIN. [Suspect]
     Active Substance: AMOXICILLIN
     Indication: BACTERIAL INFECTION
     Route: 048
     Dates: start: 20150403, end: 20150423

REACTIONS (2)
  - Abdominal pain upper [None]
  - Hunger [None]

NARRATIVE: CASE EVENT DATE: 20150422
